FAERS Safety Report 5263852-1 (Version None)
Quarter: 2007Q1

REPORT INFORMATION
  Report Type: 
  Country: None (occurrence: None)
  Receive Date: 20061213
  Receipt Date: 20041111
  Transmission Date: 20070707
  Serious: Yes (Other)
  Sender: FDA-Public Use
  Company Number: 2004UW06827

PATIENT
  Age: 68 Year
  Sex: Male
  Weight: 83.91 kg

DRUGS (8)
  1. IRESSA [Suspect]
     Indication: NON-SMALL CELL LUNG CANCER
     Dates: start: 20040321
  2. TOPROL-XL [Concomitant]
  3. ZESTRIL [Concomitant]
  4. DIGOXIN [Concomitant]
  5. COUMADIN [Concomitant]
  6. TAXOL [Concomitant]
  7. CARBOPLATIN [Concomitant]
  8. TAXOTERE [Concomitant]

REACTIONS (8)
  - ACNE [None]
  - ANOREXIA [None]
  - DIARRHOEA [None]
  - DRY SKIN [None]
  - MYCETOMA MYCOTIC [None]
  - NEUROPATHY PERIPHERAL [None]
  - RASH [None]
  - WEIGHT DECREASED [None]
